FAERS Safety Report 6284928-6 (Version None)
Quarter: 2009Q3

REPORT INFORMATION
  Report Type: 
  Country: None (occurrence: None)
  Receive Date: 20090727
  Receipt Date: 20090715
  Transmission Date: 20100115
  Serious: Yes (Other)
  Sender: FDA-Public Use
  Company Number: GB-ELI_LILLY_AND_COMPANY-GB200907003556

PATIENT
  Sex: Female

DRUGS (1)
  1. ALIMTA [Suspect]
     Dosage: UNK, 1ST SESSION
     Route: 065

REACTIONS (3)
  - HEPATIC ENZYME INCREASED [None]
  - HEPATOTOXICITY [None]
  - RASH MACULAR [None]
